FAERS Safety Report 8713587 (Version 2)
Quarter: 2012Q4

REPORT INFORMATION
  Report Type: 
  Country: JP (occurrence: JP)
  Receive Date: 20120808
  Receipt Date: 20120907
  Transmission Date: 20130627
  Serious: Yes (Hospitalization)
  Sender: FDA-Public Use
  Company Number: JP-ABBOTT-12P-087-0964496-00

PATIENT
  Age: 11 Year
  Sex: Male
  Weight: 31 kg

DRUGS (6)
  1. CLARITH [Suspect]
     Indication: PNEUMONIA MYCOPLASMAL
     Route: 048
     Dates: start: 20120627, end: 20120629
  2. UNSPECIFIED INGREDIENT [Suspect]
     Indication: PNEUMONIA MYCOPLASMAL
     Route: 048
     Dates: start: 20120627, end: 20120629
  3. TIPEPIDINE HIBENZATE [Concomitant]
     Indication: PNEUMONIA MYCOPLASMAL
     Route: 048
     Dates: start: 20120627, end: 20120629
  4. L-CARBOCYSTEINE [Concomitant]
     Indication: PNEUMONIA MYCOPLASMAL
     Route: 048
     Dates: start: 20120627, end: 20120629
  5. HOKUNALIN [Concomitant]
     Indication: PNEUMONIA MYCOPLASMAL
     Route: 062
     Dates: start: 20120627, end: 20120629
  6. UNKNOWN DRUG (ACETAMINOPHEN) [Concomitant]
     Indication: PNEUMONIA MYCOPLASMAL
     Route: 048
     Dates: start: 20120627, end: 20120629

REACTIONS (2)
  - Renal impairment [Not Recovered/Not Resolved]
  - Blood creatinine increased [None]
